FAERS Safety Report 20725646 (Version 1)
Quarter: 2022Q2

REPORT INFORMATION
  Report Type: Spontaneous
  Country: US (occurrence: None)
  Receive Date: 20220419
  Receipt Date: 20220419
  Transmission Date: 20220720
  Serious: No
  Sender: FDA-Public Use
  Company Number: None

PATIENT
  Age: 71 Year
  Sex: Female

DRUGS (3)
  1. JUXTAPID [Suspect]
     Active Substance: LOMITAPIDE MESYLATE
     Indication: Hypercholesterolaemia
     Dosage: FREQUENCY : AT BEDTIME;?
     Route: 048
  2. Super Omega 3 [Concomitant]
  3. Vitamin E 400 IU [Concomitant]

REACTIONS (3)
  - Diarrhoea [None]
  - Gastrointestinal sounds abnormal [None]
  - Inappropriate schedule of product administration [None]

NARRATIVE: CASE EVENT DATE: 20220412
